FAERS Safety Report 6788838-7 (Version None)
Quarter: 2010Q2

REPORT INFORMATION
  Report Type: 
  Country: None (occurrence: None)
  Receive Date: 20100623
  Receipt Date: 20080519
  Transmission Date: 20101027
  Serious: No
  Sender: FDA-Public Use
  Company Number: US-PFIZER INC-2008042985

PATIENT
  Sex: Female

DRUGS (2)
  1. CADUET [Suspect]
  2. LIPITOR [Suspect]

REACTIONS (1)
  - UNEVALUABLE EVENT [None]
